FAERS Safety Report 8512118-2 (Version None)
Quarter: 2012Q3

REPORT INFORMATION
  Report Type: 
  Country: None (occurrence: None)
  Receive Date: 20120716
  Receipt Date: 20120703
  Transmission Date: 20120928
  Serious: No
  Sender: FDA-Public Use
  Company Number: US-ASTRAZENECA-2012SE45296

PATIENT
  Age: 57 Year
  Sex: Male
  Weight: 81.6 kg

DRUGS (6)
  1. SYMBICORT [Suspect]
     Indication: BRONCHITIS
     Dosage: TWO TIMES A DAY
     Route: 055
     Dates: start: 20120101
  2. SYMBICORT [Suspect]
     Indication: CHRONIC OBSTRUCTIVE PULMONARY DISEASE
     Dosage: TWO TIMES A DAY
     Route: 055
     Dates: start: 20120101
  3. NAPROXEN [Concomitant]
     Indication: ARTHRITIS
     Dosage: EVERYDAY
     Route: 048
     Dates: start: 20090101
  4. SYMBICORT [Suspect]
     Indication: EMPHYSEMA
     Dosage: TWO TIMES A DAY
     Route: 055
     Dates: start: 20120101
  5. GENERIC ELAVIL [Concomitant]
     Indication: SLEEP DISORDER
     Route: 048
     Dates: start: 20090101
  6. SPIRIVA [Concomitant]
     Indication: CHRONIC OBSTRUCTIVE PULMONARY DISEASE
     Route: 055
     Dates: start: 20120101

REACTIONS (2)
  - INCORRECT DOSE ADMINISTERED [None]
  - DYSPNOEA [None]
